FAERS Safety Report 7520080-4 (Version None)
Quarter: 2011Q2

REPORT INFORMATION
  Report Type: 
  Country: None (occurrence: None)
  Receive Date: 20110602
  Receipt Date: 20110518
  Transmission Date: 20111010
  Serious: No
  Sender: FDA-Public Use
  Company Number: US-B.I. PHARMACEUTICALS,INC./RIDGEFIELD-2011-BP-13478BP

PATIENT
  Age: 84 Year
  Sex: Male

DRUGS (4)
  1. GLYBURIDE AND METFORMIN HYDROCHLORIDE [Concomitant]
     Indication: DIABETES MELLITUS
     Dosage: 1000 MG
     Route: 048
  2. TOPROL-XL [Concomitant]
     Indication: HYPERTENSION
     Route: 048
  3. AMIODARONE HCL [Concomitant]
     Indication: ATRIAL FIBRILLATION
     Dosage: 400 MG
     Route: 048
     Dates: start: 20110401
  4. PRADAXA [Suspect]
     Indication: ATRIAL FIBRILLATION
     Route: 048
     Dates: start: 20110401

REACTIONS (3)
  - CONFUSIONAL STATE [None]
  - BLOOD GLUCOSE DECREASED [None]
  - ANXIETY [None]
